FAERS Safety Report 8342617-8 (Version None)
Quarter: 2012Q2

REPORT INFORMATION
  Report Type: 
  Country: None (occurrence: None)
  Receive Date: 20120508
  Receipt Date: 20120501
  Transmission Date: 20120825
  Serious: No
  Sender: FDA-Public Use
  Company Number: US-BIOGENIDEC-2012BI015415

PATIENT
  Age: 42 Year
  Sex: Female

DRUGS (3)
  1. TYSABRI [Suspect]
     Indication: MULTIPLE SCLEROSIS
     Route: 042
     Dates: start: 20120118
  2. BACLOFEN [Concomitant]
     Indication: MUSCLE SPASTICITY
  3. BENADRYL [Concomitant]
     Indication: PREMEDICATION
     Dates: start: 20120401

REACTIONS (3)
  - INFLUENZA LIKE ILLNESS [None]
  - CYSTITIS [None]
  - HEADACHE [None]
